FAERS Safety Report 10483644 (Version 1)
Quarter: 2014Q3

REPORT INFORMATION
  Report Type: Spontaneous
  Country: GB (occurrence: None)
  Receive Date: 20140926
  Receipt Date: 20140926
  Transmission Date: 20150326
  Serious: No
  Sender: FDA-Public Use
  Company Number: GB-LHC-2014078

PATIENT
  Sex: Female

DRUGS (1)
  1. COMPRESSED MEDICAL OXYGEN [Suspect]
     Active Substance: OXYGEN
     Dosage: 2 LPM 2 HRS, INHALATION

REACTIONS (2)
  - Tremor [None]
  - Headache [None]
